FAERS Safety Report 21132054 (Version 5)
Quarter: 2022Q3

REPORT INFORMATION
  Report Type: Report from Study
  Country: IL (occurrence: IL)
  Receive Date: 20220726
  Receipt Date: 20220913
  Transmission Date: 20221026
  Serious: Yes (Hospitalization, Other)
  Sender: FDA-Public Use
  Company Number: IL-ABBVIE-22K-082-4480713-00

PATIENT
  Sex: Female

DRUGS (4)
  1. CARBIDOPA\LEVODOPA [Suspect]
     Active Substance: CARBIDOPA\LEVODOPA
     Indication: Parkinson^s disease
     Route: 050
     Dates: start: 20210707
  2. CARBIDOPA\LEVODOPA [Suspect]
     Active Substance: CARBIDOPA\LEVODOPA
     Dosage: MORNING DOSAGE(ML)10.0 , CONTINUOUS DOSAGE (ML/H) 4.0 , EXTRA?DOSAGE (ML) 2.0
     Route: 050
  3. LACTULOSE [Concomitant]
     Active Substance: LACTULOSE
     Indication: Constipation
  4. LACTULOSE [Concomitant]
     Active Substance: LACTULOSE
     Indication: Haemorrhoids

REACTIONS (19)
  - Dyschezia [Unknown]
  - Haemorrhoidal haemorrhage [Unknown]
  - Haemorrhoids [Unknown]
  - Intestinal prolapse [Not Recovered/Not Resolved]
  - Rectal prolapse [Unknown]
  - Conversion disorder [Not Recovered/Not Resolved]
  - Stress [Not Recovered/Not Resolved]
  - Keratorhexis [Not Recovered/Not Resolved]
  - Vision blurred [Not Recovered/Not Resolved]
  - Eye operation [Recovered/Resolved]
  - On and off phenomenon [Recovering/Resolving]
  - Emotional disorder [Not Recovered/Not Resolved]
  - Malaise [Unknown]
  - Incorrect route of product administration [Unknown]
  - Device breakage [Unknown]
  - Device dislocation [Unknown]
  - Device connection issue [Unknown]
  - Balance disorder [Unknown]
  - Pain in extremity [Unknown]

NARRATIVE: CASE EVENT DATE: 20220101
